FAERS Safety Report 16308202 (Version 1)
Quarter: 2019Q2

REPORT INFORMATION
  Report Type: Spontaneous
  Country: US (occurrence: US)
  Receive Date: 20190408
  Receipt Date: 20190408
  Transmission Date: 20190711
  Serious: Yes (Hospitalization)
  Sender: FDA-Public Use
  Company Number: None

PATIENT
  Age: 68 Year
  Sex: Male

DRUGS (1)
  1. OUETIAPINE, EQUIVALENT TO SEROQUEL 25MG [Suspect]
     Active Substance: QUETIAPINE
     Indication: SCHIZOAFFECTIVE DISORDER
     Route: 048
     Dates: start: 20161102, end: 20190130

REACTIONS (2)
  - Drug hypersensitivity [None]
  - Parkinson^s disease [None]

NARRATIVE: CASE EVENT DATE: 20190130
